FAERS Safety Report 8003079-3 (Version None)
Quarter: 2011Q4

REPORT INFORMATION
  Report Type: 
  Country: None (occurrence: None)
  Receive Date: 20111219
  Receipt Date: 20111202
  Transmission Date: 20120403
  Serious: Yes (Hospitalization)
  Sender: FDA-Public Use
  Company Number: 2011AP002945

PATIENT
  Age: 75 Year
  Sex: Female

DRUGS (11)
  1. ATENOLOL [Concomitant]
  2. BENDROFLUAZIDE (BENDROFLUMETHIAZIDE) [Concomitant]
  3. CLARITHROMYCIN [Suspect]
     Indication: MALAISE
     Route: 048
  4. ALENDRONATE SODIUM [Concomitant]
  5. RAMIPRIL [Concomitant]
  6. RANITIDINE HYDROCHLORIDE [Concomitant]
  7. CYCLOSPORINE [Suspect]
     Indication: CHRONIC LYMPHOCYTIC LEUKAEMIA
     Dosage: 110 MG;  PO
     Route: 048
  8. AMITRIPTYLINE HCL [Concomitant]
  9. ISOSORBIDE MONITRATE (ISOSORBIDE MONITRATE0 [Concomitant]
  10. LEVOTHYROXINE SODIUM [Concomitant]
  11. DEXAMETHASONE [Concomitant]

REACTIONS (1)
  - RENAL FAILURE ACUTE [None]
